FAERS Safety Report 6807727-2 (Version None)
Quarter: 2010Q2

REPORT INFORMATION
  Report Type: 
  Country: None (occurrence: None)
  Receive Date: 20100629
  Receipt Date: 20081208
  Transmission Date: 20101027
  Serious: No
  Sender: FDA-Public Use
  Company Number: US-PFIZER INC-2008152629

PATIENT
  Age: 51 Year
  Sex: Male

DRUGS (3)
  1. VIAGRA [Suspect]
  2. CIALIS [Interacting]
  3. NEBIVOLOL [Interacting]

REACTIONS (2)
  - DRUG INTERACTION [None]
  - ERECTILE DYSFUNCTION [None]
